FAERS Safety Report 17929346 (Version 1)
Quarter: 2020Q2

REPORT INFORMATION
  Report Type: Spontaneous
  Country: CA (occurrence: CA)
  Receive Date: 20200623
  Receipt Date: 20200623
  Transmission Date: 20200714
  Serious: Yes (Other)
  Sender: FDA-Public Use
  Company Number: CA-ACCORD-186180

PATIENT
  Age: 72 Year
  Sex: Female
  Weight: 98 kg

DRUGS (10)
  1. MAVIK [Concomitant]
     Active Substance: TRANDOLAPRIL
  2. ROSUVASTATIN. [Suspect]
     Active Substance: ROSUVASTATIN
     Indication: PRODUCT USED FOR UNKNOWN INDICATION
  3. EZETIMIBE. [Concomitant]
     Active Substance: EZETIMIBE
  4. INDAPAMIDE. [Concomitant]
     Active Substance: INDAPAMIDE
  5. KETOCONAZOLE. [Concomitant]
     Active Substance: KETOCONAZOLE
  6. LASIX [Concomitant]
     Active Substance: FUROSEMIDE
  7. METRONIDAZOLE. [Concomitant]
     Active Substance: METRONIDAZOLE
  8. PARIET [Concomitant]
     Active Substance: RABEPRAZOLE SODIUM
  9. ASA [Concomitant]
     Active Substance: ASPIRIN
  10. INFLUENZA VIRUS VACCINE POLYVA [Concomitant]
     Active Substance: INFLUENZA VIRUS VACCINE

REACTIONS (2)
  - Hepatic function abnormal [Not Recovered/Not Resolved]
  - Condition aggravated [Not Recovered/Not Resolved]
